FAERS Safety Report 8000949-7 (Version None)
Quarter: 2011Q4

REPORT INFORMATION
  Report Type: 
  Country: None (occurrence: None)
  Receive Date: 20111222
  Receipt Date: 20111213
  Transmission Date: 20120403
  Serious: Yes (Other)
  Sender: FDA-Public Use
  Company Number: US-BAYER-2011-046668

PATIENT
  Age: 43 Year
  Sex: Female
  Weight: 107.48 kg

DRUGS (13)
  1. ASPIRIN [Concomitant]
     Indication: ANTICOAGULANT THERAPY
     Dosage: UNK UNK, PRN
     Dates: start: 20070101
  2. YAZ [Suspect]
     Indication: PREMENSTRUAL SYNDROME
     Dosage: UNK
     Route: 048
     Dates: start: 20061201, end: 20070308
  3. NEXIUM [Concomitant]
     Indication: GASTROOESOPHAGEAL REFLUX DISEASE
     Dosage: 40 MG, QD
  4. SARAFEM [Concomitant]
  5. ACETYLSALICYLIC ACID SRT [Concomitant]
     Dosage: 81 MG, UNK
  6. FLUOXETINE [Concomitant]
     Indication: PREMENSTRUAL SYNDROME
  7. FLONASE [Concomitant]
     Indication: MULTIPLE ALLERGIES
     Dosage: 2 PUFF(S), PRN
  8. RELAFEN [Concomitant]
  9. MULTI-VITAMIN [Concomitant]
  10. CYMBALTA [Concomitant]
     Dosage: UNK
     Dates: start: 20080801
  11. ADVAIR DISKUS 100/50 [Concomitant]
     Indication: ASTHMA
     Dosage: 2 PUFF(S), PRN
  12. CELEBREX [Concomitant]
     Indication: PAIN MANAGEMENT
     Dosage: 200 MG, UNK
  13. ALBUTEROL [Concomitant]
     Route: 055

REACTIONS (13)
  - HYPOAESTHESIA [None]
  - ERYTHEMA [None]
  - ANHEDONIA [None]
  - POOR PERIPHERAL CIRCULATION [None]
  - THROMBOPHLEBITIS SUPERFICIAL [None]
  - ARTHRALGIA [None]
  - MUSCLE SPASMS [None]
  - EMOTIONAL DISTRESS [None]
  - DEEP VEIN THROMBOSIS [None]
  - OEDEMA PERIPHERAL [None]
  - CHOLECYSTITIS CHRONIC [None]
  - TENDERNESS [None]
  - LIMB DISCOMFORT [None]
